FAERS Safety Report 7884159-X (Version None)
Quarter: 2011Q4

REPORT INFORMATION
  Report Type: 
  Country: None (occurrence: None)
  Receive Date: 20111102
  Receipt Date: 20111024
  Transmission Date: 20120403
  Serious: Yes (Other)
  Sender: FDA-Public Use
  Company Number: JP-GLAXOSMITHKLINE-B0735869A

PATIENT
  Sex: Male

DRUGS (9)
  1. VALTREX [Suspect]
     Indication: HERPES ZOSTER
     Dosage: 3000MG PER DAY
     Route: 048
     Dates: start: 20110704, end: 20110717
  2. DEXTROMETHORPHAN HYDROBROMIDE [Concomitant]
     Indication: PNEUMONIA
     Dosage: 90MG PER DAY
     Route: 048
     Dates: start: 20110704, end: 20110717
  3. DICLOFENAC SODIUM [Concomitant]
     Route: 061
     Dates: start: 20110704, end: 20110704
  4. HIRUDOID [Concomitant]
     Route: 061
     Dates: start: 20110704, end: 20110704
  5. LOXONIN [Concomitant]
     Indication: PNEUMONIA
     Dosage: 180MG PER DAY
     Route: 048
     Dates: start: 20110704, end: 20110717
  6. LEVOFLOXACIN [Concomitant]
     Indication: PNEUMONIA
     Dosage: 500MG PER DAY
     Route: 048
     Dates: start: 20110704, end: 20110709
  7. MUCOSTA [Concomitant]
     Indication: PNEUMONIA
     Dosage: 300MG PER DAY
     Route: 048
     Dates: start: 20110704, end: 20110717
  8. RINDERON VG [Concomitant]
     Route: 061
     Dates: start: 20110704, end: 20110704
  9. ARASENA-A [Concomitant]
     Indication: HERPES ZOSTER
     Route: 061
     Dates: start: 20110704, end: 20110717

REACTIONS (3)
  - HENOCH-SCHONLEIN PURPURA [None]
  - RASH [None]
  - ERYTHEMA [None]
